FAERS Safety Report 25326905 (Version 2)
Quarter: 2025Q2

REPORT INFORMATION
  Report Type: Spontaneous
  Country: US (occurrence: US)
  Receive Date: 20250517
  Receipt Date: 20250619
  Transmission Date: 20250717
  Serious: Yes (Other)
  Sender: JOHNSON AND JOHNSON
  Company Number: US-JNJFOC-20250506175

PATIENT
  Sex: Male
  Weight: 117.93 kg

DRUGS (3)
  1. RISPERDAL [Suspect]
     Active Substance: RISPERIDONE
     Indication: Product used for unknown indication
     Route: 065
  2. RISPERDAL [Suspect]
     Active Substance: RISPERIDONE
     Route: 065
  3. ZOLOFT [Concomitant]
     Active Substance: SERTRALINE HYDROCHLORIDE
     Indication: Product used for unknown indication

REACTIONS (12)
  - Autoimmune thyroiditis [Unknown]
  - Autism spectrum disorder [Unknown]
  - Altered state of consciousness [Unknown]
  - Weight increased [Unknown]
  - Blood pressure abnormal [Unknown]
  - Tachycardia [Unknown]
  - Dyspnoea [Recovered/Resolved]
  - Abnormal behaviour [Unknown]
  - Headache [Unknown]
  - Product complaint [Unknown]
  - Drug ineffective [Unknown]
  - Hepato-lenticular degeneration [Unknown]
